FAERS Safety Report 21145031 (Version 2)
Quarter: 2022Q3

REPORT INFORMATION
  Report Type: Spontaneous
  Country: US (occurrence: US)
  Receive Date: 20220729
  Receipt Date: 20220818
  Transmission Date: 20221027
  Serious: Yes (Death, Hospitalization, Other)
  Sender: FDA-Public Use
  Company Number: US-BRISTOL-MYERS SQUIBB COMPANY-2022-080873

PATIENT
  Age: 87 Year
  Sex: Male

DRUGS (1)
  1. REVLIMID [Suspect]
     Active Substance: LENALIDOMIDE
     Indication: Plasma cell myeloma
     Dosage: 1QD DAY 1-21 AND 7 DAYS OFF
     Route: 048
     Dates: start: 20190905, end: 20220723

REACTIONS (9)
  - COVID-19 [Fatal]
  - Sepsis [Unknown]
  - Respiratory failure [Unknown]
  - Mallory-Weiss syndrome [Unknown]
  - Gastrointestinal haemorrhage [Unknown]
  - Hypotension [Unknown]
  - Diabetic foot [Unknown]
  - Acute kidney injury [Unknown]
  - Aortic aneurysm [Unknown]

NARRATIVE: CASE EVENT DATE: 20220626
